FAERS Safety Report 7674396-1 (Version None)
Quarter: 2011Q3

REPORT INFORMATION
  Report Type: 
  Country: None (occurrence: None)
  Receive Date: 20110810
  Receipt Date: 20110803
  Transmission Date: 20111222
  Serious: Yes (Other)
  Sender: FDA-Public Use
  Company Number: US-ALLERGAN-1110471US

PATIENT
  Age: 47 Year
  Sex: Female

DRUGS (2)
  1. BOTOX COSMETIC [Suspect]
     Indication: SKIN WRINKLING
     Dosage: 25 UNITS, SINGLE
     Route: 030
     Dates: start: 20101201, end: 20101201
  2. BOTOX COSMETIC [Suspect]
     Dosage: UNK
     Dates: start: 20110401, end: 20110401

REACTIONS (2)
  - MUSCULAR WEAKNESS [None]
  - HYPOAESTHESIA [None]
